FAERS Safety Report 5809753-9 (Version None)
Quarter: 2008Q3

REPORT INFORMATION
  Report Type: 
  Country: None (occurrence: None)
  Receive Date: 20080715
  Receipt Date: 20080704
  Transmission Date: 20090109
  Serious: Yes (Hospitalization)
  Sender: FDA-Public Use
  Company Number: FR-AVENTIS-200812607FR

PATIENT
  Age: 52 Year
  Sex: Female

DRUGS (10)
  1. TAXOTERE [Suspect]
     Indication: BREAST CANCER
     Route: 042
     Dates: start: 20080410, end: 20080410
  2. HERCEPTIN [Suspect]
     Indication: BREAST CANCER
     Route: 042
     Dates: start: 20080410, end: 20080410
  3. CIFLOX                             /00697201/ [Suspect]
     Route: 042
     Dates: start: 20080418, end: 20080421
  4. CIFLOX                             /00697201/ [Suspect]
     Route: 042
     Dates: start: 20080418, end: 20080421
  5. ROCEPHIN [Suspect]
     Route: 042
     Dates: start: 20080418, end: 20080421
  6. ROCEPHIN [Suspect]
     Route: 042
     Dates: start: 20080418, end: 20080421
  7. TRIFLUCAN [Suspect]
     Route: 042
     Dates: start: 20080418, end: 20080421
  8. TRIFLUCAN [Suspect]
     Route: 042
     Dates: start: 20080418, end: 20080421
  9. VANCOMYCIN HCL [Suspect]
     Route: 042
     Dates: start: 20080418, end: 20080419
  10. VANCOMYCIN HCL [Suspect]
     Route: 042
     Dates: start: 20080418, end: 20080419

REACTIONS (6)
  - BONE MARROW FAILURE [None]
  - CYTOLYTIC HEPATITIS [None]
  - HEPATOCELLULAR INJURY [None]
  - MUCOSAL INFLAMMATION [None]
  - PYREXIA [None]
  - RENAL FAILURE [None]
